FAERS Safety Report 23209187 (Version 2)
Quarter: 2023Q4

REPORT INFORMATION
  Report Type: Spontaneous
  Country: CA (occurrence: CA)
  Receive Date: 20231121
  Receipt Date: 20231206
  Transmission Date: 20240110
  Serious: Yes (Hospitalization, Other)
  Sender: FDA-Public Use
  Company Number: CA-BRISTOL-MYERS SQUIBB COMPANY-2023-166783

PATIENT

DRUGS (4)
  1. ELIQUIS [Suspect]
     Active Substance: APIXABAN
     Indication: Product used for unknown indication
  2. MYRBETRIQ [Concomitant]
     Active Substance: MIRABEGRON
     Indication: Bladder spasm
     Route: 048
     Dates: start: 20230314
  3. FUROSEMIDE [Concomitant]
     Active Substance: FUROSEMIDE
     Indication: Product used for unknown indication
     Dosage: IN MORNING
     Route: 048
  4. MELATONIN [Concomitant]
     Active Substance: MELATONIN
     Indication: Insomnia
     Dosage: IN THE EVENING PRN
     Route: 048

REACTIONS (4)
  - Haematuria [Unknown]
  - Bladder cancer [Unknown]
  - Condition aggravated [Unknown]
  - Device occlusion [Unknown]

NARRATIVE: CASE EVENT DATE: 20230629
